FAERS Safety Report 7358000-8 (Version None)
Quarter: 2011Q1

REPORT INFORMATION
  Report Type: 
  Country: None (occurrence: None)
  Receive Date: 20110307
  Receipt Date: 20100625
  Transmission Date: 20110831
  Serious: No
  Sender: FDA-Public Use
  Company Number: AEUSA201000238

PATIENT
  Age: 43 Year
  Sex: Female

DRUGS (6)
  1. WELLBUTRIN [Concomitant]
  2. ANTIHYPERTENSIVES [Concomitant]
  3. PROLASTIN-C [Suspect]
     Indication: ALPHA-1 ANTI-TRYPSIN DEFICIENCY
     Dosage: 60 MG/KG;QW;IV
     Route: 042
     Dates: start: 20100525, end: 20100624
  4. SYMBICORT [Concomitant]
  5. SPIRIVA [Concomitant]
  6. ALBUTEROL [Concomitant]

REACTIONS (4)
  - PYREXIA [None]
  - NO REACTION ON PREVIOUS EXPOSURE TO DRUG [None]
  - FEELING HOT [None]
  - DIZZINESS [None]
